FAERS Safety Report 7512313-5 (Version None)
Quarter: 2011Q2

REPORT INFORMATION
  Report Type: 
  Country: None (occurrence: None)
  Receive Date: 20110531
  Receipt Date: 20110526
  Transmission Date: 20111010
  Serious: Yes (Death)
  Sender: FDA-Public Use
  Company Number: FR-ASTRAZENECA-2011SE32511

PATIENT
  Age: 16 Year
  Sex: Male
  Weight: 70 kg

DRUGS (17)
  1. NEXIUM [Suspect]
     Route: 042
     Dates: start: 20110130, end: 20110203
  2. CEFTRIAXONE [Suspect]
     Route: 065
     Dates: start: 20110129, end: 20110203
  3. POTASSIUM CHLORIDE [Suspect]
     Route: 065
     Dates: start: 20110129, end: 20110130
  4. METRONIDAZOLE [Suspect]
     Route: 065
     Dates: start: 20110129, end: 20110208
  5. ZYVOX [Suspect]
     Dosage: 2 MG/ML
     Route: 042
     Dates: start: 20110204
  6. AMOXICILLINE ACID CLAVULANIQUE GSK [Suspect]
     Route: 065
     Dates: start: 20110129, end: 20110129
  7. MIDAZOLAM HCL [Suspect]
     Route: 065
     Dates: start: 20110129
  8. VITAMIN K1 [Suspect]
     Dosage: ONCE/SINGLE ADMINISTRATION
     Route: 042
     Dates: start: 20110130, end: 20110130
  9. FUROSEMIDE [Suspect]
     Route: 065
     Dates: start: 20110201
  10. COLCHIFAB [Suspect]
     Indication: TOXICITY TO VARIOUS AGENTS
     Dosage: 500 MG/10 ML ONCE/SINGLE ADMINISTRATION
     Route: 042
     Dates: start: 20110129
  11. DIPRIVAN [Suspect]
     Route: 042
     Dates: start: 20110131, end: 20110201
  12. CEFOTAXIME [Suspect]
     Route: 065
     Dates: start: 20110129, end: 20110129
  13. COSYNTROPIN [Suspect]
     Dosage: 0.25 MG/ML ONCE/SINGLE ADMINISTRATION
     Route: 042
     Dates: start: 20110131, end: 20110131
  14. PIPERACILLIN AND TAZOBACTAM [Suspect]
     Dosage: 4 G/500 MG
     Route: 042
     Dates: start: 20110203, end: 20110204
  15. COLCHICINE [Suspect]
     Route: 048
     Dates: end: 20110127
  16. FENTANYL [Suspect]
     Route: 065
     Dates: start: 20110129
  17. AMIKACIN [Suspect]
     Route: 065
     Dates: start: 20110130, end: 20110206

REACTIONS (3)
  - HEPATIC STEATOSIS [None]
  - DERMATITIS EXFOLIATIVE [None]
  - PANCYTOPENIA [None]
